FAERS Safety Report 16291241 (Version 2)
Quarter: 2019Q2

REPORT INFORMATION
  Report Type: Report from Study
  Country: CA (occurrence: CA)
  Receive Date: 20190509
  Receipt Date: 20190530
  Transmission Date: 20190711
  Serious: Yes (Death, Hospitalization, Other)
  Sender: FDA-Public Use
  Company Number: CA-TAIHO ONCOLOGY  INC-EU-2019-01031

PATIENT
  Age: 76 Year
  Sex: Male
  Weight: 90 kg

DRUGS (6)
  1. DEXAMETHASONE. [Concomitant]
     Active Substance: DEXAMETHASONE
     Dosage: NI
  2. BUDESONIDE INHALER [Concomitant]
  3. BISOPROLOL [Concomitant]
     Active Substance: BISOPROLOL
     Dosage: NI
  4. LONSURF [Suspect]
     Active Substance: TIPIRACIL HYDROCHLORIDE\TRIFLURIDINE
     Indication: COLORECTAL CANCER METASTATIC
     Dosage: CURRENT CYCLE UNKNOWN.
     Route: 048
     Dates: start: 20190114, end: 201903
  5. SALBUTAMOL [Concomitant]
     Active Substance: ALBUTEROL
     Dosage: NI
  6. DALTEPARIN [Concomitant]
     Active Substance: DALTEPARIN
     Dosage: NI

REACTIONS (4)
  - Neutropenia [Recovered/Resolved]
  - Disease progression [Unknown]
  - Pneumonia [Fatal]
  - Anaemia [Recovering/Resolving]

NARRATIVE: CASE EVENT DATE: 20190305
